FAERS Safety Report 4653272-2 (Version None)
Quarter: 2005Q2

REPORT INFORMATION
  Report Type: 
  Country: None (occurrence: None)
  Receive Date: 20050505
  Receipt Date: 20050225
  Transmission Date: 20051028
  Serious: Yes (Hospitalization)
  Sender: FDA-Public Use
  Company Number: DE-BOEHRINGER INGELHEIM PHARMACEUTICALS, INC.-2005-DE-00927BY

PATIENT
  Sex: Female

DRUGS (11)
  1. KINZALMONO [Suspect]
     Indication: HYPERTENSION
     Route: 048
     Dates: start: 20031128, end: 20040330
  2. VERA [Concomitant]
  3. ENALAPRIL MALEATE [Concomitant]
  4. FURORESE [Concomitant]
  5. BENALAPRIL [Concomitant]
     Route: 065
     Dates: start: 20040331
  6. BISOPROLOL FUMARATE [Concomitant]
     Route: 065
     Dates: start: 20040317
  7. DELIX PLUS [Concomitant]
     Route: 065
     Dates: start: 20040317
  8. ESIDRIX [Concomitant]
     Route: 065
     Dates: start: 20040331
  9. ISOKET [Concomitant]
     Route: 065
     Dates: start: 20040331
  10. MOLSIHEXAL [Concomitant]
     Route: 065
     Dates: start: 20040503
  11. CONCOR COR [Concomitant]
     Route: 065
     Dates: start: 20040503

REACTIONS (2)
  - MENIERE'S DISEASE [None]
  - VERTIGO [None]
